FAERS Safety Report 16186687 (Version 3)
Quarter: 2020Q1

REPORT INFORMATION
  Report Type: Report from Study
  Country: US (occurrence: US)
  Receive Date: 20190411
  Receipt Date: 20200207
  Transmission Date: 20200409
  Serious: Yes (Death, Hospitalization)
  Sender: FDA-Public Use
  Company Number: US-ACTELION-A-NJ2019-188887

PATIENT
  Age: 77 Year
  Sex: Male
  Weight: 83.9 kg

DRUGS (5)
  1. OPSUMIT [Suspect]
     Active Substance: MACITENTAN
     Indication: COR PULMONALE CHRONIC
     Dosage: 10 MG, QD
     Route: 048
     Dates: start: 20180420
  2. LASIX [Concomitant]
     Active Substance: FUROSEMIDE
     Dosage: 80MG AM, 80MG PM
  3. XARELTO [Concomitant]
     Active Substance: RIVAROXABAN
  4. LASIX [Concomitant]
     Active Substance: FUROSEMIDE
     Dosage: 20MG AM, 20MG PM
  5. LASIX [Concomitant]
     Active Substance: FUROSEMIDE
     Dosage: 40MG AM, 40MG PM

REACTIONS (8)
  - Death [Fatal]
  - Arrhythmia [Recovering/Resolving]
  - Cardiac disorder [Not Recovered/Not Resolved]
  - Contusion [Not Recovered/Not Resolved]
  - Renal disorder [Not Recovered/Not Resolved]
  - Fluid retention [Not Recovered/Not Resolved]
  - Cardioversion [Recovered/Resolved]
  - Dysuria [Recovering/Resolving]

NARRATIVE: CASE EVENT DATE: 201903
